FAERS Safety Report 23350172 (Version 4)
Quarter: 2024Q2

REPORT INFORMATION
  Report Type: Spontaneous
  Country: GB (occurrence: GB)
  Receive Date: 20231229
  Receipt Date: 20240504
  Transmission Date: 20240716
  Serious: Yes (Life-Threatening, Hospitalization, Disabling, Other)
  Sender: FDA-Public Use
  Company Number: None

PATIENT
  Age: 62 Year
  Sex: Male
  Weight: 77 kg

DRUGS (2)
  1. ESCITALOPRAM [Suspect]
     Active Substance: ESCITALOPRAM OXALATE
     Indication: Anxiety
     Dosage: IN THE MORNING
     Route: 048
  2. TAMSULOSIN [Concomitant]
     Active Substance: TAMSULOSIN
     Indication: Prostatism
     Dates: start: 20150801

REACTIONS (7)
  - Nightmare [Unknown]
  - Rapid eye movement sleep behaviour disorder [Unknown]
  - Withdrawal syndrome [Not Recovered/Not Resolved]
  - Anxiety disorder [Unknown]
  - Abnormal dreams [Not Recovered/Not Resolved]
  - Sleep terror [Recovered/Resolved with Sequelae]
  - Electric shock sensation [Unknown]

NARRATIVE: CASE EVENT DATE: 20230328
